FAERS Safety Report 7030160-8 (Version None)
Quarter: 2010Q4

REPORT INFORMATION
  Report Type: 
  Country: None (occurrence: None)
  Receive Date: 20101006
  Receipt Date: 20100923
  Transmission Date: 20110411
  Serious: No
  Sender: FDA-Public Use
  Company Number: US-B.I. PHARMACEUTICALS,INC./RIDGEFIELD-2010-BP-10839BP

PATIENT
  Age: 68 Year
  Sex: Female

DRUGS (2)
  1. ZANTAC 75 [Suspect]
     Indication: DYSPEPSIA
     Dosage: 75 MG
     Route: 048
     Dates: start: 20100921
  2. TENORMIN [Concomitant]
     Indication: CARDIAC DISORDER

REACTIONS (2)
  - ABDOMINAL PAIN [None]
  - FREQUENT BOWEL MOVEMENTS [None]
